FAERS Safety Report 11399187 (Version 1)
Quarter: 2015Q3

REPORT INFORMATION
  Report Type: Spontaneous
  Country: US (occurrence: None)
  Receive Date: 20150818
  Receipt Date: 20150818
  Transmission Date: 20151125
  Serious: Yes (Other)
  Sender: FDA-Public Use
  Company Number: None

PATIENT
  Sex: Male

DRUGS (1)
  1. EPOGEN [Suspect]
     Active Substance: ERYTHROPOIETIN
     Indication: HEART TRANSPLANT
     Route: 058
     Dates: start: 20150715

REACTIONS (4)
  - Nausea [None]
  - Decreased appetite [None]
  - Dysgeusia [None]
  - Weight decreased [None]
